FAERS Safety Report 7047790-X (Version None)
Quarter: 2010Q4

REPORT INFORMATION
  Report Type: 
  Country: None (occurrence: None)
  Receive Date: 20101015
  Receipt Date: 20101005
  Transmission Date: 20110411
  Serious: Yes (Death, Other)
  Sender: FDA-Public Use
  Company Number: US-PFIZER INC-2010023991

PATIENT
  Sex: Female

DRUGS (1)
  1. REVATIO [Suspect]
     Indication: SCLERODERMA

REACTIONS (4)
  - CARDIAC PACEMAKER INSERTION [None]
  - PULMONARY HYPERTENSION [None]
  - RAYNAUD'S PHENOMENON [None]
  - SCLERODERMA [None]
